FAERS Safety Report 21507339 (Version 5)
Quarter: 2024Q3

REPORT INFORMATION
  Report Type: Spontaneous
  Country: US (occurrence: US)
  Receive Date: 20221026
  Receipt Date: 20240919
  Transmission Date: 20241017
  Serious: Yes (Other)
  Sender: SANOFI AVENTIS
  Company Number: US-SA-SAC00000000014740

PATIENT
  Age: 58 Year
  Sex: Female
  Weight: 77.11 kg

DRUGS (3)
  1. CEREZYME [Suspect]
     Active Substance: IMIGLUCERASE
     Indication: Gaucher^s disease
     Dosage: 3600 IU, QOW
     Route: 041
     Dates: start: 201609
  2. CEREZYME [Suspect]
     Active Substance: IMIGLUCERASE
     Dosage: 3600 IU, QOW
     Route: 041
  3. EPINEPHRINE [Concomitant]
     Active Substance: EPINEPHRINE
     Dosage: UNK

REACTIONS (4)
  - Lyme disease [Unknown]
  - Weight decreased [Unknown]
  - Illness [Unknown]
  - Weight increased [Unknown]

NARRATIVE: CASE EVENT DATE: 20221110
